FAERS Safety Report 16517678 (Version 2)
Quarter: 2019Q3

REPORT INFORMATION
  Report Type: Spontaneous
  Country: FR (occurrence: FR)
  Receive Date: 20190702
  Receipt Date: 20190716
  Transmission Date: 20191004
  Serious: Yes (Death, Other)
  Sender: FDA-Public Use
  Company Number: FR-MYLANLABS-2019M1060690

PATIENT
  Age: 61 Year
  Sex: Male
  Weight: 80 kg

DRUGS (20)
  1. AMAREL [Concomitant]
     Active Substance: GLIMEPIRIDE
     Dosage: 1 DOSAGE FORM, QD
     Route: 048
  2. AUGMENTIN [Concomitant]
     Active Substance: AMOXICILLIN\CLAVULANATE POTASSIUM
     Dosage: UNK
     Route: 048
     Dates: start: 20181206
  3. FUROSEMIDE. [Concomitant]
     Active Substance: FUROSEMIDE
     Dosage: UNK
     Route: 048
  4. LYRICA [Concomitant]
     Active Substance: PREGABALIN
     Dosage: 1 DOSAGE FORM, QD
     Route: 048
  5. CARTREX [Concomitant]
     Active Substance: ACECLOFENAC
     Dosage: UNK
  6. MONTELUKAST SODIUM. [Concomitant]
     Active Substance: MONTELUKAST SODIUM
     Dosage: UNK
     Route: 048
  7. OMEPRAZOLE. [Concomitant]
     Active Substance: OMEPRAZOLE
     Dosage: UNK
     Route: 048
  8. SERETIDE [Concomitant]
     Active Substance: FLUTICASONE PROPIONATE\SALMETEROL XINAFOATE
     Dosage: 2 DOSAGE FORM, QD
     Route: 055
  9. CELESTENE                          /02907501/ [Concomitant]
     Dosage: UNK
     Route: 048
     Dates: start: 20181206
  10. IRBESARTAN. [Concomitant]
     Active Substance: IRBESARTAN
     Dosage: 50 MILLIGRAM, QD
     Route: 048
  11. INCRUSE ELLIPTA [Concomitant]
     Active Substance: UMECLIDINIUM BROMIDE
     Dosage: 1 DOSAGE FORM, QD
     Route: 055
  12. TRINITRINE [Concomitant]
     Active Substance: NITROGLYCERIN
     Route: 062
  13. METFORMIN [Suspect]
     Active Substance: METFORMIN HYDROCHLORIDE
     Indication: TYPE 2 DIABETES MELLITUS
     Dosage: 2000 MILLIGRAM, QD
     Route: 048
     Dates: end: 20181208
  14. ALDACTONE [Concomitant]
     Active Substance: SPIRONOLACTONE
     Dosage: 2 DOSAGE FORM, QD
     Route: 048
  15. DESLORATADINE. [Concomitant]
     Active Substance: DESLORATADINE
     Dosage: 8 MILLIGRAM, QD
     Route: 048
  16. KARDEGIC [Concomitant]
     Active Substance: ASPIRIN DL-LYSINE
     Dosage: 1 DOSAGE FORM, QD
     Route: 048
  17. IRBESARTAN. [Concomitant]
     Active Substance: IRBESARTAN
     Dosage: 150 MILLIGRAM, QD
     Route: 048
  18. PLAVIX [Concomitant]
     Active Substance: CLOPIDOGREL BISULFATE
     Dosage: 1 DOSAGE FORM, QD
     Route: 048
  19. LANTUS [Concomitant]
     Active Substance: INSULIN GLARGINE
     Dosage: UNK
     Route: 058
  20. IKOREL [Concomitant]
     Active Substance: NICORANDIL
     Dosage: 2 DOSAGE FORM, QD
     Route: 048

REACTIONS (2)
  - Metabolic acidosis [Fatal]
  - Acute kidney injury [Recovering/Resolving]

NARRATIVE: CASE EVENT DATE: 20181208
